FAERS Safety Report 10143748 (Version 2)
Quarter: 2014Q2

REPORT INFORMATION
  Report Type: Spontaneous
  Country: US (occurrence: US)
  Receive Date: 20140430
  Receipt Date: 20140522
  Transmission Date: 20141212
  Serious: Yes (Other)
  Sender: FDA-Public Use
  Company Number: US-ENDO PHARMACEUTICALS INC.-CARI20140005

PATIENT
  Age: 42 Year
  Sex: Female
  Weight: 45.85 kg

DRUGS (6)
  1. CARISOPRODOL TABLETS 350MG [Suspect]
     Indication: MYALGIA
     Route: 048
     Dates: start: 2011, end: 20140405
  2. CARISOPRODOL TABLETS 350MG [Suspect]
     Indication: INSOMNIA
  3. CARISOPRODOL TABLETS 350MG [Suspect]
     Indication: FIBROMYALGIA
  4. OXYCODONE HCL 30MG [Concomitant]
     Indication: ARTHRALGIA
     Route: 048
     Dates: start: 2010
  5. MORPHINE [Concomitant]
     Indication: ARTHRALGIA
     Route: 048
     Dates: start: 2012
  6. SAVELLA [Concomitant]
     Indication: FIBROMYALGIA
     Route: 048
     Dates: start: 2010

REACTIONS (3)
  - Somnambulism [Recovered/Resolved]
  - Road traffic accident [Recovered/Resolved]
  - Memory impairment [Unknown]
